FAERS Safety Report 9979152 (Version 1)
Quarter: 2014Q1

REPORT INFORMATION
  Report Type: Report from Study
  Country: US (occurrence: US)
  Receive Date: 20140306
  Receipt Date: 20140306
  Transmission Date: 20141002
  Serious: No
  Sender: FDA-Public Use
  Company Number: US-ABBVIE-13P-163-1169448-00

PATIENT
  Age: 52 Year
  Sex: Female
  Weight: 90.8 kg

DRUGS (5)
  1. HUMIRA [Suspect]
     Indication: PSORIASIS
     Dates: start: 201308, end: 201310
  2. GLIMEPRIDE [Concomitant]
     Indication: DIABETES MELLITUS
     Dates: start: 201305
  3. MULTIVITAMIN [Concomitant]
     Indication: VITAMIN SUPPLEMENTATION
  4. CALCIUM [Concomitant]
     Indication: MINERAL SUPPLEMENTATION
  5. MAGNESIUM [Concomitant]
     Indication: MINERAL SUPPLEMENTATION

REACTIONS (3)
  - Nasal congestion [Recovered/Resolved]
  - Sinusitis [Recovered/Resolved]
  - Headache [Recovered/Resolved]
